FAERS Safety Report 6216711-1 (Version None)
Quarter: 2009Q2

REPORT INFORMATION
  Report Type: 
  Country: None (occurrence: None)
  Receive Date: 20090605
  Receipt Date: 20090527
  Transmission Date: 20091009
  Serious: Yes (Hospitalization, Other)
  Sender: FDA-Public Use
  Company Number: US-PURDUE-USA-2009-0038395

PATIENT
  Sex: Male

DRUGS (8)
  1. OXYCONTIN [Suspect]
     Indication: SCIATICA
     Dosage: 20 MG, BID
     Route: 048
     Dates: start: 20090301
  2. DURAGESIC-100 [Concomitant]
     Indication: SCIATICA
     Dosage: UNK
  3. ROXICODONE [Concomitant]
     Indication: SCIATICA
     Dosage: UNK
  4. LANOXIN [Concomitant]
     Indication: PALPITATIONS
  5. METOPROLOL SUCCINATE [Concomitant]
     Indication: DRUG USE FOR UNKNOWN INDICATION
  6. LEUKERAN [Concomitant]
     Indication: LEUKAEMIA
     Dosage: UNK
  7. LUPRON [Concomitant]
     Indication: PROSTATE CANCER
     Dosage: UNK
  8. AMBIEN [Concomitant]
     Indication: INSOMNIA
     Dosage: UNK

REACTIONS (4)
  - AMNESIA [None]
  - DIZZINESS [None]
  - FALL [None]
  - HIP FRACTURE [None]
